FAERS Safety Report 8282301-2 (Version None)
Quarter: 2012Q2

REPORT INFORMATION
  Report Type: 
  Country: None (occurrence: None)
  Receive Date: 20120413
  Receipt Date: 20120413
  Transmission Date: 20120825
  Serious: No
  Sender: FDA-Public Use
  Company Number: None

PATIENT
  Age: 52 Year
  Sex: Female
  Weight: 58.967 kg

DRUGS (4)
  1. TEMAZEPAM [Concomitant]
     Route: 048
  2. ADDERALL 5 [Concomitant]
     Route: 048
  3. FLUOXETINE [Concomitant]
     Route: 048
  4. GLATIRAMER ACETATE [Suspect]
     Indication: MULTIPLE SCLEROSIS
     Dosage: 20 MG / 1 ML
     Route: 058
     Dates: start: 20120323, end: 20120328

REACTIONS (3)
  - SWOLLEN TONGUE [None]
  - MYALGIA [None]
  - ORAL PAIN [None]
